FAERS Safety Report 11273190 (Version 1)
Quarter: 2015Q3

REPORT INFORMATION
  Report Type: Spontaneous
  Country: IT (occurrence: IT)
  Receive Date: 20150715
  Receipt Date: 20150715
  Transmission Date: 20151125
  Serious: Yes (Hospitalization)
  Sender: FDA-Public Use
  Company Number: PHHY2015IT083749

PATIENT
  Age: 5 Month

DRUGS (1)
  1. METHOTREXATE [Suspect]
     Active Substance: METHOTREXATE
     Indication: LEUKAEMIA
     Dosage: 5000 MG/M2
     Route: 065

REACTIONS (5)
  - Metabolic acidosis [Recovering/Resolving]
  - Lethargy [Recovering/Resolving]
  - Electrolyte imbalance [Recovering/Resolving]
  - Vitamin B1 decreased [Recovering/Resolving]
  - Tachypnoea [Recovering/Resolving]
